FAERS Safety Report 23319714 (Version 1)
Quarter: 2023Q4

REPORT INFORMATION
  Report Type: Report from Study
  Country: ZA (occurrence: ZA)
  Receive Date: 20231220
  Receipt Date: 20231220
  Transmission Date: 20240109
  Serious: Yes (Other)
  Sender: FDA-Public Use
  Company Number: ZA-002147023-NVSC2023ZA265986

PATIENT
  Age: 62 Year
  Sex: Female

DRUGS (1)
  1. OFATUMUMAB [Suspect]
     Active Substance: OFATUMUMAB
     Indication: Relapsing-remitting multiple sclerosis
     Dosage: 20 MG, QW
     Route: 058
     Dates: start: 20231211

REACTIONS (5)
  - Relapsing-remitting multiple sclerosis [Unknown]
  - Anaphylactic reaction [Unknown]
  - Rash [Unknown]
  - Condition aggravated [Unknown]
  - Chest discomfort [Unknown]

NARRATIVE: CASE EVENT DATE: 20231211
